FAERS Safety Report 5409367-9 (Version None)
Quarter: 2007Q3

REPORT INFORMATION
  Report Type: 
  Country: None (occurrence: None)
  Receive Date: 20070808
  Receipt Date: 20070808
  Transmission Date: 20080115
  Serious: Yes (Other)
  Sender: FDA-Public Use
  Company Number: None

PATIENT
  Age: 71 Year
  Sex: Female

DRUGS (7)
  1. REVLIMID [Suspect]
     Indication: MYELODYSPLASTIC SYNDROME
     Dosage: 10MG DAILY X21D/28D PO  1 CYCLE
     Route: 048
     Dates: start: 20070706, end: 20070726
  2. EXJADE [Concomitant]
  3. FOSAMAX PLUS D [Concomitant]
  4. DOXYCYCLINE [Concomitant]
  5. ASAREL [Concomitant]
  6. LORATADINE [Concomitant]
  7. ASPIRIN [Concomitant]

REACTIONS (1)
  - THROMBOCYTOPENIA [None]
